FAERS Safety Report 5826468-1 (Version None)
Quarter: 2008Q3

REPORT INFORMATION
  Report Type: 
  Country: None (occurrence: None)
  Receive Date: 20080729
  Receipt Date: 20080724
  Transmission Date: 20090109
  Serious: Yes (Death, Life-Threatening, Hospitalization, Disabling, Other)
  Sender: FDA-Public Use
  Company Number: MX-ABBOTT-08P-107-0455071-00

PATIENT
  Sex: Male

DRUGS (1)
  1. KALETRA [Suspect]
     Indication: HIV INFECTION
     Route: 048
     Dates: start: 20060404

REACTIONS (4)
  - GRAND MAL CONVULSION [None]
  - HEMIPARESIS [None]
  - HEMIPLEGIA [None]
  - TOXOPLASMOSIS [None]
